FAERS Safety Report 6712084-6 (Version None)
Quarter: 2010Q2

REPORT INFORMATION
  Report Type: 
  Country: None (occurrence: None)
  Receive Date: 20100505
  Receipt Date: 20100422
  Transmission Date: 20101027
  Serious: Yes (Hospitalization, Other)
  Sender: FDA-Public Use
  Company Number: BR-GENENTECH-297897

PATIENT
  Sex: Male
  Weight: 70 kg

DRUGS (7)
  1. RITUXIMAB [Suspect]
     Indication: SYSTEMIC LUPUS ERYTHEMATOSUS
     Dosage: 500 MG/ML, UNK
     Route: 042
     Dates: start: 20090203, end: 20090218
  2. RITUXIMAB [Suspect]
     Dosage: UNK
     Route: 042
     Dates: start: 20091207
  3. WARFARIN SODIUM [Concomitant]
     Indication: DRUG USE FOR UNKNOWN INDICATION
     Dosage: 5 MG, UNK
     Dates: start: 20060101
  4. METICORTEN [Concomitant]
     Indication: DRUG USE FOR UNKNOWN INDICATION
     Dosage: 20 MG, UNK
     Dates: start: 20060101
  5. LASIX [Concomitant]
     Indication: DRUG USE FOR UNKNOWN INDICATION
     Dosage: 40 MG, UNK
     Dates: start: 20060101
  6. TYLEX [Concomitant]
     Indication: DRUG USE FOR UNKNOWN INDICATION
     Dosage: 30 MG, UNK
  7. METHOTREXATE [Concomitant]
     Indication: SYSTEMIC LUPUS ERYTHEMATOSUS

REACTIONS (11)
  - ABDOMINAL PAIN [None]
  - ANTIPHOSPHOLIPID SYNDROME [None]
  - COMA [None]
  - ENCEPHALOPATHY [None]
  - GLOMERULONEPHRITIS [None]
  - PNEUMONIA [None]
  - PRURITUS [None]
  - PSORIASIS [None]
  - SKIN DISCOLOURATION [None]
  - URINARY TRACT INFECTION [None]
  - WOUND [None]
